FAERS Safety Report 23364521 (Version 4)
Quarter: 2025Q2

REPORT INFORMATION
  Report Type: Spontaneous
  Country: CZ (occurrence: CZ)
  Receive Date: 20240104
  Receipt Date: 20250423
  Transmission Date: 20250716
  Serious: Yes (Congenital Anomaly, Other)
  Sender: SANDOZ
  Company Number: CZ-OPELLA-2023OHG004777

PATIENT
  Sex: Female

DRUGS (3)
  1. NIMESULIDE [Suspect]
     Active Substance: NIMESULIDE
     Indication: Migraine
     Route: 064
  2. ACETAMINOPHEN [Suspect]
     Active Substance: ACETAMINOPHEN
     Indication: Foetal exposure during pregnancy
     Route: 064
  3. ACETAMINOPHEN [Suspect]
     Active Substance: ACETAMINOPHEN
     Indication: Migraine

REACTIONS (11)
  - Pulmonary hypertension [Recovering/Resolving]
  - Ductus arteriosus premature closure [Unknown]
  - Tricuspid valve incompetence [Recovering/Resolving]
  - Patent ductus arteriosus [Recovering/Resolving]
  - Right ventricular hypertrophy [Recovering/Resolving]
  - Hypoxia [Unknown]
  - Cardiac hypertrophy [Unknown]
  - Neonatal behavioural syndrome [Recovering/Resolving]
  - Premature baby [Unknown]
  - Ventricular hypertrophy [Unknown]
  - Foetal exposure during pregnancy [Unknown]
